FAERS Safety Report 24093845 (Version 1)
Quarter: 2024Q3

REPORT INFORMATION
  Report Type: Report from Study
  Country: US (occurrence: US)
  Receive Date: 20240716
  Receipt Date: 20240716
  Transmission Date: 20241017
  Serious: Yes (Hospitalization, Other)
  Sender: ABBVIE
  Company Number: US-ABBVIE-5836982

PATIENT
  Sex: Female

DRUGS (1)
  1. RINVOQ [Suspect]
     Active Substance: UPADACITINIB
     Indication: Ankylosing spondylitis
     Dosage: LAST DATE :2024?STRENGTH: 15 MG
     Route: 048
     Dates: start: 202404

REACTIONS (7)
  - Liposuction [Unknown]
  - Abdominoplasty [Unknown]
  - Oral herpes [Unknown]
  - Hypoaesthesia [Unknown]
  - Arthralgia [Unknown]
  - Incision site impaired healing [Unknown]
  - Postoperative wound complication [Unknown]

NARRATIVE: CASE EVENT DATE: 20240101
